FAERS Safety Report 9522231 (Version 3)
Quarter: 2014Q2

REPORT INFORMATION
  Report Type: Spontaneous
  Country: CM (occurrence: CM)
  Receive Date: 20130913
  Receipt Date: 20140426
  Transmission Date: 20141212
  Serious: Yes (Death, Hospitalization)
  Sender: FDA-Public Use
  Company Number: CM-009507513-1308CMR003946

PATIENT
  Age: 46 Year
  Sex: Male
  Weight: 69 kg

DRUGS (5)
  1. MECTIZAN [Suspect]
     Indication: FILARIASIS LYMPHATIC
     Dosage: 4 TABLETS, UNK
     Route: 048
     Dates: start: 20130724
  2. MECTIZAN [Suspect]
     Dosage: UNK
     Route: 048
     Dates: start: 2005
  3. MECTIZAN [Suspect]
     Dosage: UNK
     Route: 048
     Dates: start: 2006
  4. MECTIZAN [Suspect]
     Dosage: UNK
     Route: 048
     Dates: start: 2009
  5. ALBENDAZOLE [Suspect]
     Indication: FILARIASIS LYMPHATIC
     Dosage: 1 TABLET, UNK
     Dates: start: 20130724

REACTIONS (9)
  - Poisoning [Fatal]
  - Dyspnoea [Recovered/Resolved]
  - Depressed level of consciousness [Recovered/Resolved]
  - Pyrexia [Recovered/Resolved]
  - Headache [Recovered/Resolved]
  - Arthralgia [Recovered/Resolved]
  - Tachycardia [Recovered/Resolved]
  - Asthenia [Recovered/Resolved]
  - Abdominal pain upper [Recovered/Resolved]
